FAERS Safety Report 8082329-1 (Version None)
Quarter: 2012Q1

REPORT INFORMATION
  Report Type: 
  Country: None (occurrence: None)
  Receive Date: 20120127
  Receipt Date: 20110318
  Transmission Date: 20120608
  Serious: No
  Sender: FDA-Public Use
  Company Number: US-ABBOTT-11P-163-0705804-00

PATIENT
  Age: 22 Year
  Sex: Female

DRUGS (4)
  1. PENTASA [Concomitant]
     Indication: CROHN'S DISEASE
  2. HUMIRA [Suspect]
     Indication: CROHN'S DISEASE
     Dates: start: 20101101
  3. SYNTHROID [Concomitant]
     Indication: HYPOTHYROIDISM
  4. LOW ESTROGEN BIRTH CONTROL PILLS [Concomitant]
     Indication: OVARIAN CYST
     Dosage: LOW ESTROGEN 24

REACTIONS (4)
  - NAUSEA [None]
  - HEADACHE [None]
  - FATIGUE [None]
  - DIZZINESS [None]
